FAERS Safety Report 9448435 (Version 1)
Quarter: 2013Q3

REPORT INFORMATION
  Report Type: Spontaneous
  Country: IT (occurrence: IT)
  Receive Date: 20130808
  Receipt Date: 20130808
  Transmission Date: 20140515
  Serious: Yes (Death)
  Sender: FDA-Public Use
  Company Number: PHHY2013IT084835

PATIENT
  Age: 35 Year
  Sex: Male

DRUGS (3)
  1. METHADONE [Suspect]
  2. MORPHINE [Suspect]
  3. CODEINE PHOSPHATE [Suspect]

REACTIONS (1)
  - Toxicity to various agents [Fatal]
